FAERS Safety Report 4524180-2 (Version None)
Quarter: 2004Q4

REPORT INFORMATION
  Report Type: 
  Country: None (occurrence: None)
  Receive Date: 20041119
  Receipt Date: 20041014
  Transmission Date: 20050328
  Serious: No
  Sender: FDA-Public Use
  Company Number: PHEH2004US11049

PATIENT
  Age: 43 Year
  Sex: Female

DRUGS (4)
  1. ZELNORM [Suspect]
     Indication: CONSTIPATION
     Dosage: 2 MG, BID, ORAL
     Route: 048
     Dates: start: 20040701
  2. SYNTHROID [Concomitant]
  3. ESTROGEN NOS (ESTROGEN NOS) [Concomitant]
  4. VITAMINS [Concomitant]

REACTIONS (1)
  - ALOPECIA [None]
